FAERS Safety Report 24433934 (Version 1)
Quarter: 2024Q4

REPORT INFORMATION
  Report Type: Spontaneous
  Country: US (occurrence: US)
  Receive Date: 20241014
  Receipt Date: 20241014
  Transmission Date: 20250115
  Serious: No
  Sender: BRISTOL-MYERS SQUIBB COMPANY
  Company Number: US-BRISTOL-MYERS SQUIBB COMPANY-2024-161679

PATIENT
  Age: 72 Year
  Sex: Male
  Weight: 75.3 kg

DRUGS (2)
  1. POMALYST [Suspect]
     Active Substance: POMALIDOMIDE
     Indication: Plasma cell myeloma
     Route: 048
     Dates: start: 20240920
  2. POMALYST [Suspect]
     Active Substance: POMALIDOMIDE

REACTIONS (3)
  - Abdominal discomfort [Not Recovered/Not Resolved]
  - Periodic limb movement disorder [Not Recovered/Not Resolved]
  - Logorrhoea [Not Recovered/Not Resolved]
